FAERS Safety Report 18059057 (Version 1)
Quarter: 2020Q3

REPORT INFORMATION
  Report Type: Spontaneous
  Country: US (occurrence: US)
  Receive Date: 20200722
  Receipt Date: 20200722
  Transmission Date: 20201103
  Serious: Yes (Hospitalization)
  Sender: FDA-Public Use
  Company Number: None

PATIENT
  Sex: Male

DRUGS (14)
  1. GABAPENTIN. [Concomitant]
     Active Substance: GABAPENTIN
  2. MORPHINE SUL [Suspect]
     Active Substance: MORPHINE SULFATE
  3. TRAMADOL HCL [Suspect]
     Active Substance: TRAMADOL HYDROCHLORIDE
  4. DOK [Concomitant]
     Active Substance: DOCUSATE SODIUM
  5. METOPROL TAR [Concomitant]
  6. OXYCODONE [Suspect]
     Active Substance: OXYCODONE
  7. A?HYDROCORT [Concomitant]
     Active Substance: HYDROCORTISONE SODIUM SUCCINATE
  8. DEXAMETHASON [Concomitant]
     Active Substance: DEXAMETHASONE
  9. SMZ/TMP DS [Suspect]
     Active Substance: SULFAMETHOXAZOLE\TRIMETHOPRIM
  10. AMLODIPINE [Concomitant]
     Active Substance: AMLODIPINE BESYLATE
  11. EVEROLIMUS 5MG (7 TAB/CARD) [Suspect]
     Active Substance: EVEROLIMUS
     Indication: RENAL CANCER
     Dosage: ?          OTHER DOSE:1 TAB;?
     Route: 048
     Dates: start: 20200603
  12. MEGESTROL AC [Concomitant]
  13. METOPROLOL. [Suspect]
     Active Substance: METOPROLOL
  14. OXYCODONE AND ACETAMINOPHEN [Suspect]
     Active Substance: ACETAMINOPHEN\OXYCODONE HYDROCHLORIDE

REACTIONS (1)
  - Hospitalisation [None]
